FAERS Safety Report 18567392 (Version 1)
Quarter: 2020Q4

REPORT INFORMATION
  Report Type: Spontaneous
  Country: FR (occurrence: FR)
  Receive Date: 20201201
  Receipt Date: 20201201
  Transmission Date: 20210114
  Serious: Yes (Death, Life-Threatening, Hospitalization)
  Sender: FDA-Public Use
  Company Number: FR-BAXTER-2020BAX024088

PATIENT
  Age: 70 Year
  Sex: Female

DRUGS (19)
  1. NASONEX [Concomitant]
     Active Substance: MOMETASONE FUROATE
     Indication: PRODUCT USED FOR UNKNOWN INDICATION
     Dosage: 50 MICROGRAMS/ACTUATION, NASAL SPRAY, SUSPENSION
     Route: 045
  2. RITUXIMAB (MAMMAL/HAMSTER/CHO CELLS) [Suspect]
     Active Substance: RITUXIMAB
     Indication: CHEMOTHERAPY
     Dosage: UNKNOWN
     Route: 042
     Dates: start: 2006, end: 2006
  3. SYMBICORT [Concomitant]
     Active Substance: BUDESONIDE\FORMOTEROL FUMARATE DIHYDRATE
     Indication: PRODUCT USED FOR UNKNOWN INDICATION
     Route: 055
  4. VINCRISTINE SULFATE. [Suspect]
     Active Substance: VINCRISTINE SULFATE
     Indication: CHEMOTHERAPY
     Dosage: UNKNOWN
     Route: 042
     Dates: start: 2006, end: 2006
  5. HOLOXAN 2000 MG, POUDRE POUR USAGE PARENTERAL [Suspect]
     Active Substance: IFOSFAMIDE
     Indication: CHEMOTHERAPY
     Dosage: UNKNOWN
     Route: 042
     Dates: start: 2008, end: 2008
  6. VINORELBINE DITARTRATE [Suspect]
     Active Substance: VINORELBINE TARTRATE
     Indication: CHEMOTHERAPY
     Dosage: UNKNOWN
     Route: 042
     Dates: start: 2008, end: 2008
  7. DOXORUBICIN [Suspect]
     Active Substance: DOXORUBICIN
     Indication: CHEMOTHERAPY
     Dosage: UNKNOWN
     Route: 042
     Dates: start: 2006, end: 2006
  8. LEVOTHYROX [Concomitant]
     Active Substance: LEVOTHYROXINE
     Indication: PRODUCT USED FOR UNKNOWN INDICATION
     Route: 048
  9. BISOPROLOL FUMARIC ACID [Concomitant]
     Active Substance: BISOPROLOL FUMARATE
     Indication: PRODUCT USED FOR UNKNOWN INDICATION
     Route: 048
  10. TRIATEC [RAMIPRIL] [Concomitant]
     Active Substance: RAMIPRIL
     Indication: PRODUCT USED FOR UNKNOWN INDICATION
     Dosage: SCORED TABLET
     Route: 048
  11. ENDOXAN 1000 MG, POUDRE POUR SOLUTIONINJECTABLE [Suspect]
     Active Substance: CYCLOPHOSPHAMIDE
     Indication: CHEMOTHERAPY
     Dosage: UNKNOWN
     Route: 042
     Dates: start: 2006, end: 2006
  12. CELLTOP 100 MG/5 ML, SOLUTION INJECTABLE POUR PERFUSION [Suspect]
     Active Substance: ETOPOSIDE
     Indication: CHEMOTHERAPY
     Dosage: UNKNOWN
     Route: 042
     Dates: start: 2008, end: 2008
  13. INEXIUM [Concomitant]
     Active Substance: ESOMEPRAZOLE
     Indication: PRODUCT USED FOR UNKNOWN INDICATION
     Route: 048
  14. LASILIX [Concomitant]
     Active Substance: FUROSEMIDE
     Indication: PRODUCT USED FOR UNKNOWN INDICATION
     Dosage: SCORED TABLET
     Route: 048
  15. MITOGUAZONE DIHYDROCHLORIDE MONOHYDRATE. [Suspect]
     Active Substance: MITOGUAZONE DIHYDROCHLORIDE MONOHYDRATE
     Indication: CHEMOTHERAPY
     Dosage: UNKNOWN
     Route: 042
     Dates: start: 2008, end: 2008
  16. MEDIATOR [Suspect]
     Active Substance: BENFLUOREX
     Indication: WEIGHT INCREASED
     Dosage: UNKNOWN
     Route: 048
  17. MIMPARA [Concomitant]
     Active Substance: CINACALCET HYDROCHLORIDE
     Indication: PRODUCT USED FOR UNKNOWN INDICATION
     Route: 048
  18. SPECIAFOLDINE [Concomitant]
     Active Substance: FOLIC ACID
     Indication: PRODUCT USED FOR UNKNOWN INDICATION
     Dosage: DOSAGE FORM: TABLET
     Route: 048
  19. ZYMAD [Concomitant]
     Active Substance: CHOLECALCIFEROL
     Indication: PRODUCT USED FOR UNKNOWN INDICATION
     Dosage: ORAL SOLUTION IN AMPOULES
     Route: 048

REACTIONS (1)
  - Pulmonary arterial hypertension [Fatal]

NARRATIVE: CASE EVENT DATE: 2018
